FAERS Safety Report 7561066-3 (Version None)
Quarter: 2011Q2

REPORT INFORMATION
  Report Type: 
  Country: None (occurrence: None)
  Receive Date: 20110621
  Receipt Date: 20110620
  Transmission Date: 20111010
  Serious: Yes (Hospitalization, Other)
  Sender: FDA-Public Use
  Company Number: US-UCBSA-028383

PATIENT
  Sex: Female

DRUGS (11)
  1. SLIDING SCALE INSULIN WITH LEVEMIR [Concomitant]
     Dosage: 20 UNITS DAILY
  2. KEPPRA [Suspect]
     Indication: STATUS EPILEPTICUS
     Route: 042
     Dates: start: 20110207, end: 20110216
  3. KEPPRA [Suspect]
     Indication: CONVULSION
     Route: 042
     Dates: start: 20110207, end: 20110216
  4. SIMVASTATIN [Concomitant]
  5. LOVENOX [Concomitant]
  6. PHENYTOIN [Suspect]
     Indication: STATUS EPILEPTICUS
     Dosage: 230 MG QAM AND 200 MG QPM
  7. VIMPAT [Suspect]
     Indication: STATUS EPILEPTICUS
     Route: 042
     Dates: start: 20110216, end: 20110218
  8. KEPPRA [Suspect]
     Route: 042
     Dates: start: 20110207, end: 20110216
  9. GABAPENTIN [Concomitant]
  10. ALBUTEROL SULFATE AUTOHALER [Concomitant]
     Dosage: NEBULIZER, EVRY 4-6 HOURS
  11. VERSED [Concomitant]

REACTIONS (10)
  - HYPERTENSIVE CRISIS [None]
  - ENCEPHALOPATHY [None]
  - JUGULAR VEIN THROMBOSIS [None]
  - EXCORIATION [None]
  - PYREXIA [None]
  - ATRIAL TACHYCARDIA [None]
  - LEUKOPENIA [None]
  - HEPATITIS [None]
  - DIARRHOEA [None]
  - TRACHEAL STENOSIS [None]
